FAERS Safety Report 11833587 (Version 1)
Quarter: 2015Q4

REPORT INFORMATION
  Report Type: Spontaneous
  Country: JP (occurrence: JP)
  Receive Date: 20151214
  Receipt Date: 20151214
  Transmission Date: 20160305
  Serious: Yes (Other)
  Sender: FDA-Public Use
  Company Number: JP-ARBOR PHARMACEUTICALS, LLC-JP-2015ARB001073

PATIENT
  Age: 77 Year
  Sex: Male

DRUGS (1)
  1. GLIADEL [Suspect]
     Active Substance: CARMUSTINE
     Indication: MALIGNANT GLIOMA
     Dosage: 7.7 MG, 8 TOTAL
     Dates: start: 20140327

REACTIONS (4)
  - Aphasia [Recovering/Resolving]
  - Sensory disturbance [None]
  - Hemiplegia [Recovering/Resolving]
  - Pneumocephalus [Recovered/Resolved]

NARRATIVE: CASE EVENT DATE: 20140329
